FAERS Safety Report 8952858 (Version 1)
Quarter: 2012Q4

REPORT INFORMATION
  Report Type: 
  Country: CN (occurrence: CN)
  Receive Date: 20121203
  Receipt Date: 20121203
  Transmission Date: 20130627
  Serious: Yes (Other)
  Sender: FDA-Public Use
  Company Number: PHHY2012CN108843

PATIENT
  Age: 50 Year
  Sex: Female
  Weight: 62.5 kg

DRUGS (1)
  1. TEGRETOL [Suspect]
     Indication: RADICULITIS
     Dosage: 0.1 g, TID
     Dates: start: 20110810, end: 20110823

REACTIONS (1)
  - Herpes zoster [Recovering/Resolving]
